FAERS Safety Report 13875411 (Version 3)
Quarter: 2017Q4

REPORT INFORMATION
  Report Type: Spontaneous
  Country: CN (occurrence: CN)
  Receive Date: 20170817
  Receipt Date: 20171027
  Transmission Date: 20180320
  Serious: Yes (Life-Threatening, Hospitalization, Other)
  Sender: FDA-Public Use
  Company Number: CN-SUN PHARMACEUTICAL INDUSTRIES LTD-2017RR-147406

PATIENT
  Age: 62 Year
  Sex: Male

DRUGS (10)
  1. CEFUROXIME. [Suspect]
     Active Substance: CEFUROXIME
     Indication: ANTIBIOTIC THERAPY
     Dosage: 1.5 G, BID
     Route: 065
     Dates: start: 20120426
  2. MOXIFLOXACIN. [Suspect]
     Active Substance: MOXIFLOXACIN
     Indication: ANTIBIOTIC THERAPY
     Route: 065
     Dates: start: 201203, end: 2012
  3. XELODA [Suspect]
     Active Substance: CAPECITABINE
     Indication: ADENOCARCINOMA GASTRIC
     Dosage: 1500 MG, TWICE A DAY DAY 1 TO DAY 14, 1 CYCLE
     Route: 065
     Dates: start: 20120207, end: 20120301
  4. CIPROFLOXACIN. [Suspect]
     Active Substance: CIPROFLOXACIN
     Indication: ANTIBIOTIC THERAPY
     Route: 065
     Dates: start: 201204
  5. PACLITAXEL. [Suspect]
     Active Substance: PACLITAXEL
     Indication: ADENOCARCINOMA GASTRIC
     Dosage: 150 MG, DAY 1, 2 CYCLES.
     Route: 065
     Dates: start: 20120207, end: 20120301
  6. PACLITAXEL. [Suspect]
     Active Substance: PACLITAXEL
     Dosage: 120 MG, DAY 8, 2 CYCLES
     Route: 065
     Dates: start: 20120207, end: 20120301
  7. OXALIPLATIN. [Suspect]
     Active Substance: OXALIPLATIN
     Indication: ADENOCARCINOMA GASTRIC
     Dosage: 200 MG, DAY 1, 1 CYCLE
     Route: 065
     Dates: start: 20120207, end: 20120301
  8. MEROPENEM. [Suspect]
     Active Substance: MEROPENEM
     Indication: ANTIBIOTIC THERAPY
     Dosage: UNK
     Route: 065
     Dates: start: 201204, end: 20120426
  9. CEFTRIAXONE. [Suspect]
     Active Substance: CEFTRIAXONE
     Indication: ANTIBIOTIC THERAPY
     Route: 065
     Dates: start: 201203, end: 2012
  10. MEROPENEM. [Suspect]
     Active Substance: MEROPENEM
     Dosage: UNK
     Route: 065
     Dates: start: 201203, end: 2012

REACTIONS (15)
  - Dizziness [Unknown]
  - Body temperature increased [Unknown]
  - Gastrointestinal haemorrhage [Recovered/Resolved]
  - Arterial rupture [Recovered/Resolved]
  - Escherichia infection [Unknown]
  - Lung infection [Unknown]
  - Aspergillus infection [Recovered/Resolved]
  - Haematochezia [Unknown]
  - Urinary tract infection [Unknown]
  - Fatigue [Unknown]
  - Vomiting [Unknown]
  - Liver function test abnormal [Unknown]
  - Hypotension [Unknown]
  - Nausea [Unknown]
  - Pleural effusion [Unknown]

NARRATIVE: CASE EVENT DATE: 2012
